FAERS Safety Report 5721681-6 (Version None)
Quarter: 2008Q2

REPORT INFORMATION
  Report Type: 
  Country: None (occurrence: None)
  Receive Date: 20080429
  Receipt Date: 20080312
  Transmission Date: 20081010
  Serious: Yes (Death, Hospitalization)
  Sender: FDA-Public Use
  Company Number: FR-ROCHE-397895

PATIENT
  Sex: Male
  Weight: 79 kg

DRUGS (6)
  1. INTERFERON ALFA-2A [Suspect]
     Route: 058
     Dates: start: 20050131, end: 20050304
  2. PLACEBO [Suspect]
     Route: 042
     Dates: start: 20050131, end: 20050228
  3. PERINDOPRIL ERBUMINE [Concomitant]
     Dates: start: 19870101
  4. FUROSEMIDE [Concomitant]
     Dates: start: 19870101
  5. ZOLPIDEM [Concomitant]
     Dates: start: 20050216
  6. FLUCONAZOLE [Concomitant]
     Dates: start: 20050228

REACTIONS (1)
  - RENAL FAILURE ACUTE [None]
